FAERS Safety Report 8623210 (Version 3)
Quarter: 2014Q4

REPORT INFORMATION
  Report Type: Spontaneous
  Country: US (occurrence: US)
  Receive Date: 20120620
  Receipt Date: 20141024
  Transmission Date: 20150529
  Serious: Yes (Life-Threatening, Hospitalization, Other)
  Sender: FDA-Public Use
  Company Number: US-ELI_LILLY_AND_COMPANY-US201206002957

PATIENT
  Age: 51 Year
  Sex: Female

DRUGS (17)
  1. PLAVIX [Concomitant]
     Active Substance: CLOPIDOGREL BISULFATE
  2. CYMBALTA [Suspect]
     Active Substance: DULOXETINE HYDROCHLORIDE
     Indication: FIBROMYALGIA
     Dosage: 20 MG, QD
     Route: 065
     Dates: end: 201305
  3. TRAZODONE [Concomitant]
     Active Substance: TRAZODONE HYDROCHLORIDE
  4. HYDROCODONE [Concomitant]
     Active Substance: HYDROCODONE
     Indication: PAIN
  5. XANAX [Concomitant]
     Active Substance: ALPRAZOLAM
  6. TOPROL XL [Concomitant]
     Active Substance: METOPROLOL SUCCINATE
  7. ASPIRIN. [Concomitant]
     Active Substance: ASPIRIN
  8. BYSTOLIC [Concomitant]
     Active Substance: NEBIVOLOL HYDROCHLORIDE
  9. SYNTHROID [Concomitant]
     Active Substance: LEVOTHYROXINE SODIUM
  10. OXYCODONE [Concomitant]
     Active Substance: OXYCODONE
  11. LEVOXYL [Concomitant]
     Active Substance: LEVOTHYROXINE SODIUM
     Indication: THYROID DISORDER
  12. CYMBALTA [Suspect]
     Active Substance: DULOXETINE HYDROCHLORIDE
     Dosage: 100 MG, BID
     Route: 065
  13. CYCLOBENZAPRINE [Suspect]
     Active Substance: CYCLOBENZAPRINE
     Indication: PRODUCT USED FOR UNKNOWN INDICATION
     Dosage: 1 DF, UNKNOWN
     Route: 065
  14. LIPITOR [Concomitant]
     Active Substance: ATORVASTATIN CALCIUM
  15. VASOTEC [Concomitant]
     Active Substance: ENALAPRIL MALEATE
     Indication: HYPERTENSION
  16. CYMBALTA [Suspect]
     Active Substance: DULOXETINE HYDROCHLORIDE
     Dosage: 20 MG, BID
     Route: 065
     Dates: start: 20101028, end: 201205
  17. CYMBALTA [Suspect]
     Active Substance: DULOXETINE HYDROCHLORIDE
     Dosage: 100 MG, QD
     Route: 065

REACTIONS (30)
  - Exfoliative rash [Not Recovered/Not Resolved]
  - Rash generalised [Not Recovered/Not Resolved]
  - Hyperhidrosis [Not Recovered/Not Resolved]
  - Fatigue [Unknown]
  - Confusional state [Unknown]
  - Limb discomfort [Unknown]
  - Nausea [Unknown]
  - Diarrhoea [Unknown]
  - Dry skin [Unknown]
  - Respiratory depression [Unknown]
  - Loss of consciousness [Unknown]
  - Feeling abnormal [Unknown]
  - Hallucination [Unknown]
  - Resuscitation [Unknown]
  - Dreamy state [Unknown]
  - Hypertension [Unknown]
  - Chills [Not Recovered/Not Resolved]
  - Sleep disorder [Unknown]
  - Dizziness [Unknown]
  - Rash [Unknown]
  - Blood glucose increased [Unknown]
  - Mydriasis [Unknown]
  - Agitation [Unknown]
  - Lip swelling [Unknown]
  - Hypersensitivity [Unknown]
  - Amnesia [Unknown]
  - Vomiting [Unknown]
  - Hypokinesia [Unknown]
  - Serotonin syndrome [Unknown]
  - Visual impairment [Unknown]

NARRATIVE: CASE EVENT DATE: 201012
